FAERS Safety Report 9812052 (Version 2)
Quarter: 2016Q4

REPORT INFORMATION
  Report Type: Spontaneous
  Country: US (occurrence: US)
  Receive Date: 20140110
  Receipt Date: 20161219
  Transmission Date: 20170207
  Serious: Yes (Hospitalization)
  Sender: FDA-Public Use
  Company Number: US-SA-2013SA111244

PATIENT
  Age: 45 Year
  Sex: Female

DRUGS (60)
  1. CYMBALTA [Concomitant]
     Active Substance: DULOXETINE HYDROCHLORIDE
  2. XOPENEX [Concomitant]
     Active Substance: LEVALBUTEROL HYDROCHLORIDE
  3. CLOPIDOGREL BISULFATE. [Concomitant]
     Active Substance: CLOPIDOGREL BISULFATE
  4. PRAVACHOL [Concomitant]
     Active Substance: PRAVASTATIN SODIUM
  5. LEVOXYL [Concomitant]
     Active Substance: LEVOTHYROXINE SODIUM
  6. TOPAMAX [Concomitant]
     Active Substance: TOPIRAMATE
  7. ATIVAN [Concomitant]
     Active Substance: LORAZEPAM
  8. CEPHALEXIN. [Concomitant]
     Active Substance: CEPHALEXIN
     Dosage: 500 MG
  9. CLINDAMYCIN. [Concomitant]
     Active Substance: CLINDAMYCIN
     Dosage: 300 MG
  10. PREDNISONE. [Concomitant]
     Active Substance: PREDNISONE
  11. THYROXIN [Concomitant]
     Active Substance: LEVOTHYROXINE
  12. NITRO PATCH [Concomitant]
     Active Substance: NITROGLYCERIN
  13. SINGULAIR [Concomitant]
     Active Substance: MONTELUKAST SODIUM
  14. BENADRYL [Concomitant]
     Active Substance: DIPHENHYDRAMINE HYDROCHLORIDE
  15. LOPRESSOR [Concomitant]
     Active Substance: METOPROLOL TARTRATE
  16. FLONASE [Concomitant]
     Active Substance: FLUTICASONE PROPIONATE
  17. AZITHROMYCIN ANHYDROUS. [Concomitant]
     Active Substance: AZITHROMYCIN ANHYDROUS
  18. DILTIAZEM. [Concomitant]
     Active Substance: DILTIAZEM
  19. PROTONIX [Concomitant]
     Active Substance: PANTOPRAZOLE SODIUM
  20. MORPHINE [Concomitant]
     Active Substance: MORPHINE
     Dosage: 300 MG
  21. MOTRIN [Concomitant]
     Active Substance: IBUPROFEN
  22. FUROSEMIDE. [Concomitant]
     Active Substance: FUROSEMIDE
  23. FIORICET [Concomitant]
     Active Substance: ACETAMINOPHEN\BUTALBITAL\CAFFEINE
  24. ALBUTEROL. [Concomitant]
     Active Substance: ALBUTEROL
  25. PERCOCET [Concomitant]
     Active Substance: ACETAMINOPHEN\OXYCODONE HYDROCHLORIDE
  26. SYNTHROID [Concomitant]
     Active Substance: LEVOTHYROXINE SODIUM
  27. FERROUS SULFATE. [Concomitant]
     Active Substance: FERROUS SULFATE
  28. PROAIR HFA [Concomitant]
     Active Substance: ALBUTEROL SULFATE
     Dosage: 90 MCG INHALER
  29. ASPIRIN. [Concomitant]
     Active Substance: ASPIRIN
  30. LISINOPRIL. [Concomitant]
     Active Substance: LISINOPRIL
  31. SERAX [Concomitant]
     Active Substance: OXAZEPAM
  32. COMBIVENT [Concomitant]
     Active Substance: ALBUTEROL SULFATE\IPRATROPIUM BROMIDE
  33. BENZONATATE. [Concomitant]
     Active Substance: BENZONATATE
  34. CLARITIN [Concomitant]
     Active Substance: LORATADINE
  35. OXYCONTIN [Concomitant]
     Active Substance: OXYCODONE HYDROCHLORIDE
     Dosage: 40 MG
  36. DIAZEPAM. [Concomitant]
     Active Substance: DIAZEPAM
     Dosage: 10 MG
  37. TRAMADOL. [Concomitant]
     Active Substance: TRAMADOL
     Dosage: 50 MG
  38. LIPITOR [Concomitant]
     Active Substance: ATORVASTATIN CALCIUM
  39. LOVENOX [Concomitant]
     Active Substance: ENOXAPARIN SODIUM
  40. BACTRIM [Concomitant]
     Active Substance: SULFAMETHOXAZOLE\TRIMETHOPRIM
  41. AMBIEN [Concomitant]
     Active Substance: ZOLPIDEM TARTRATE
  42. NASONEX [Concomitant]
     Active Substance: MOMETASONE FUROATE
  43. COUMADIN [Concomitant]
     Active Substance: WARFARIN SODIUM
  44. PENICILLIN [Concomitant]
     Active Substance: PENICILLIN
  45. METFORMIN [Concomitant]
     Active Substance: METFORMIN HYDROCHLORIDE
  46. EPIPEN [Concomitant]
     Active Substance: EPINEPHRINE
  47. METOPROLOL. [Concomitant]
     Active Substance: METOPROLOL
  48. COLACE [Concomitant]
     Active Substance: DOCUSATE SODIUM
  49. GLUCOPHAGE [Concomitant]
     Active Substance: METFORMIN HYDROCHLORIDE
  50. PROVENTIL [Concomitant]
     Active Substance: ALBUTEROL
     Dosage: 90 MCG INHALER
  51. GLYBURIDE. [Concomitant]
     Active Substance: GLYBURIDE
     Dosage: 5 MG
  52. LEVAQUIN [Concomitant]
     Active Substance: LEVOFLOXACIN
     Dosage: 500 MG
  53. PLAVIX [Suspect]
     Active Substance: CLOPIDOGREL BISULFATE
     Indication: STENT PLACEMENT
     Route: 065
     Dates: start: 20070320, end: 20140303
  54. TICLOPIDINE [Concomitant]
     Active Substance: TICLOPIDINE
  55. LUVOX [Concomitant]
     Active Substance: FLUVOXAMINE MALEATE
  56. LEVOTHYROXINE. [Concomitant]
     Active Substance: LEVOTHYROXINE
  57. ADVAIR HFA [Concomitant]
     Active Substance: FLUTICASONE PROPIONATE\SALMETEROL XINAFOATE
  58. KLONOPIN [Concomitant]
     Active Substance: CLONAZEPAM
  59. PEPCID [Concomitant]
     Active Substance: FAMOTIDINE
  60. SIMVASTATIN. [Concomitant]
     Active Substance: SIMVASTATIN
     Dosage: 40 MG

REACTIONS (7)
  - Headache [Unknown]
  - Gastrointestinal haemorrhage [Unknown]
  - Vaginal haemorrhage [Unknown]
  - Vision blurred [Unknown]
  - Epistaxis [Unknown]
  - Confusional state [Unknown]
  - Skin discolouration [Unknown]

NARRATIVE: CASE EVENT DATE: 20070330
